FAERS Safety Report 15758435 (Version 3)
Quarter: 2020Q2

REPORT INFORMATION
  Report Type: Spontaneous
  Country: HR (occurrence: HR)
  Receive Date: 20181225
  Receipt Date: 20200413
  Transmission Date: 20200713
  Serious: Yes (Other)
  Sender: FDA-Public Use
  Company Number: HR-TEVA-2018-HR-991099

PATIENT
  Age: 74 Year
  Sex: Female
  Weight: 69 kg

DRUGS (6)
  1. KISQALI [Interacting]
     Active Substance: RIBOCICLIB
     Indication: BREAST CANCER FEMALE
     Dosage: 600 MILLIGRAM DAILY;
     Route: 048
     Dates: start: 20180814
  2. KISQALI [Interacting]
     Active Substance: RIBOCICLIB
     Indication: BREAST CANCER FEMALE
     Dosage: 600 MILLIGRAM DAILY;
     Route: 048
     Dates: start: 20180814
  3. KISQALI [Interacting]
     Active Substance: RIBOCICLIB
     Indication: BREAST CANCER FEMALE
     Dosage: 600 MILLIGRAM DAILY;
     Route: 048
     Dates: start: 20180814
  4. IRUMED [Concomitant]
     Indication: ESSENTIAL HYPERTENSION
     Dosage: 10 MILLIGRAM DAILY;
     Route: 048
  5. ANASTROZOL [Suspect]
     Active Substance: ANASTROZOLE
     Indication: BREAST CANCER FEMALE
     Dosage: 1 MILLIGRAM DAILY; 1 MG
     Route: 048
     Dates: start: 20180724
  6. IBUPROFEN. [Concomitant]
     Active Substance: IBUPROFEN

REACTIONS (3)
  - Hepatic lesion [Recovered/Resolved]
  - Transaminases increased [Recovering/Resolving]
  - Drug interaction [Unknown]

NARRATIVE: CASE EVENT DATE: 20180911
